FAERS Safety Report 16109109 (Version 1)
Quarter: 2019Q1

REPORT INFORMATION
  Report Type: Spontaneous
  Country: US (occurrence: US)
  Receive Date: 20190323
  Receipt Date: 20190323
  Transmission Date: 20190418
  Serious: No
  Sender: FDA-Public Use
  Company Number: US-THERAPEUTICSMD-2019TMD00142

PATIENT
  Sex: Female
  Weight: 62.13 kg

DRUGS (3)
  1. UNSPECIFIED SLEEPING PILL [Concomitant]
     Active Substance: UNSPECIFIED INGREDIENT
  2. IMVEXXY [Suspect]
     Active Substance: ESTRADIOL
     Indication: MENOPAUSE
     Dosage: 10 ?G, 2X/WEEK IN THE DAY TIME
     Route: 067
     Dates: start: 201901, end: 20190211
  3. IMVEXXY [Suspect]
     Active Substance: ESTRADIOL
     Indication: VULVOVAGINAL DRYNESS
     Dosage: 10 ?G, 2X/WEEK IN THE DAY TIME
     Route: 067
     Dates: start: 201901, end: 20190211

REACTIONS (4)
  - Headache [Not Recovered/Not Resolved]
  - Product residue present [Recovered/Resolved]
  - Drug ineffective for unapproved indication [Recovered/Resolved]
  - Off label use [Recovered/Resolved]

NARRATIVE: CASE EVENT DATE: 2019
